FAERS Safety Report 19873895 (Version 2)
Quarter: 2021Q3

REPORT INFORMATION
  Report Type: Spontaneous
  Country: CN (occurrence: CN)
  Receive Date: 20210922
  Receipt Date: 20210929
  Transmission Date: 20211014
  Serious: Yes (Other)
  Sender: FDA-Public Use
  Company Number: NVSC2021CN212571

PATIENT
  Age: 77 Year
  Sex: Male

DRUGS (3)
  1. TOBRADEX [Suspect]
     Active Substance: DEXAMETHASONE\TOBRAMYCIN
     Indication: EYELID OEDEMA
  2. TOBRADEX [Suspect]
     Active Substance: DEXAMETHASONE\TOBRAMYCIN
     Indication: CONJUNCTIVAL HYPERAEMIA
     Dosage: 3.5 G, QD
     Route: 047
     Dates: start: 20210907, end: 20210907
  3. TOBRADEX [Suspect]
     Active Substance: DEXAMETHASONE\TOBRAMYCIN
     Indication: EYE PAIN

REACTIONS (3)
  - Conjunctival hyperaemia [Recovering/Resolving]
  - Eyelid oedema [Recovering/Resolving]
  - Eye pain [Recovering/Resolving]

NARRATIVE: CASE EVENT DATE: 20210907
